FAERS Safety Report 18480657 (Version 1)
Quarter: 2020Q4

REPORT INFORMATION
  Report Type: Report from Study
  Country: GT (occurrence: GT)
  Receive Date: 20201109
  Receipt Date: 20201109
  Transmission Date: 20210114
  Serious: Yes (Life-Threatening, Other)
  Sender: FDA-Public Use
  Company Number: NVSC2020GT299705

PATIENT
  Age: 80 Year
  Sex: Male

DRUGS (1)
  1. GALVUS MET [Suspect]
     Active Substance: METFORMIN HYDROCHLORIDE\VILDAGLIPTIN
     Indication: PRODUCT USED FOR UNKNOWN INDICATION
     Dosage: 1 DF (50/500 MG)
     Route: 065

REACTIONS (8)
  - Diabetic coma [Unknown]
  - Gait disturbance [Unknown]
  - Arthralgia [Unknown]
  - Emotional disorder [Unknown]
  - Feeling abnormal [Unknown]
  - Near death experience [Unknown]
  - Movement disorder [Unknown]
  - Musculoskeletal pain [Unknown]
